FAERS Safety Report 7506060-3 (Version None)
Quarter: 2011Q2

REPORT INFORMATION
  Report Type: 
  Country: None (occurrence: None)
  Receive Date: 20110526
  Receipt Date: 20110524
  Transmission Date: 20111010
  Serious: Yes (Hospitalization)
  Sender: FDA-Public Use
  Company Number: GB-TEVA-278827ISR

PATIENT
  Age: 79 Year
  Sex: Male

DRUGS (3)
  1. MESALAMINE [Suspect]
     Indication: CROHN'S DISEASE
  2. PREDNISOLONE [Suspect]
     Indication: CROHN'S DISEASE
  3. SULFASALAZINE [Suspect]
     Indication: CROHN'S DISEASE

REACTIONS (6)
  - FALL [None]
  - INTESTINAL DIAPHRAGM DISEASE [None]
  - WEIGHT DECREASED [None]
  - SMALL INTESTINAL STENOSIS [None]
  - ANAEMIA [None]
  - LACERATION [None]
